FAERS Safety Report 25259022 (Version 2)
Quarter: 2025Q2

REPORT INFORMATION
  Report Type: Spontaneous
  Country: US (occurrence: US)
  Receive Date: 20250501
  Receipt Date: 20250613
  Transmission Date: 20250716
  Serious: No
  Sender: MYLAN
  Company Number: US-MYLANLABS-2025M1035605

PATIENT
  Sex: Male
  Weight: 75 kg

DRUGS (6)
  1. LYRICA [Suspect]
     Active Substance: PREGABALIN
     Indication: Arthralgia
     Dosage: 25 MILLIGRAM, BID (TWICE A DAY)
  2. LYRICA [Suspect]
     Active Substance: PREGABALIN
     Indication: Pain
  3. FENTANYL [Concomitant]
     Active Substance: FENTANYL
     Indication: Pain
  4. DILAUDID [Concomitant]
     Active Substance: HYDROMORPHONE HYDROCHLORIDE
     Indication: Pain
  5. TORADOL [Concomitant]
     Active Substance: KETOROLAC TROMETHAMINE
     Indication: Pain
  6. IBUPROFEN [Concomitant]
     Active Substance: IBUPROFEN
     Indication: Pain

REACTIONS (3)
  - Ataxia [Unknown]
  - Dysphagia [Unknown]
  - Off label use [Unknown]
